FAERS Safety Report 8142130-7 (Version None)
Quarter: 2012Q1

REPORT INFORMATION
  Report Type: 
  Country: None (occurrence: None)
  Receive Date: 20120216
  Receipt Date: 20120209
  Transmission Date: 20120608
  Serious: Yes (Hospitalization)
  Sender: FDA-Public Use
  Company Number: HR-GENZYME-CAMP-1001966

PATIENT
  Sex: Female
  Weight: 62 kg

DRUGS (6)
  1. ALEMTUZUMAB [Suspect]
  2. REBIF [Concomitant]
     Indication: MULTIPLE SCLEROSIS
     Dosage: 8.8 MCG THEN UPTITRATED PER PROTOCOL
     Route: 058
     Dates: start: 20080909, end: 20100608
  3. ALEMTUZUMAB [Suspect]
     Indication: MULTIPLE SCLEROSIS
     Dosage: 12 MG, QD
     Route: 042
     Dates: start: 20101025, end: 20101029
  4. METHYLPREDNISOLONE [Concomitant]
     Dosage: 1.0 G, QD
     Dates: start: 20090908, end: 20090910
  5. METHYLPREDNISOLONE [Concomitant]
     Indication: MULTIPLE SCLEROSIS
     Dosage: 1.0 G, QD
     Dates: start: 20101025, end: 20101027
  6. METHYLPREDNISOLONE [Concomitant]
     Dosage: 1.0 G, QD
     Dates: start: 20080909, end: 20080911

REACTIONS (1)
  - BLOOD CREATININE INCREASED [None]
